FAERS Safety Report 8591080-0 (Version None)
Quarter: 2012Q3

REPORT INFORMATION
  Report Type: 
  Country: None (occurrence: None)
  Receive Date: 20120813
  Receipt Date: 20120803
  Transmission Date: 20120928
  Serious: Yes (Death, Hospitalization)
  Sender: FDA-Public Use
  Company Number: HU-BAXTER-2012BAX013674

PATIENT
  Sex: Male

DRUGS (5)
  1. EXTRANEAL [Suspect]
     Route: 033
     Dates: start: 20120515, end: 20120701
  2. FORTUM                             /00559701/ [Suspect]
     Indication: PERITONITIS
     Route: 033
     Dates: start: 20120626, end: 20120701
  3. DIANEAL PD4 GLUCOSE 2,27% PERITONEALIS DIALIZALO OLDAT [Suspect]
     Route: 033
     Dates: start: 20120614, end: 20120701
  4. VANCOMYCIN [Suspect]
     Indication: PERITONITIS
     Route: 033
     Dates: start: 20120629, end: 20120629
  5. DIANEAL PD4 GLUCOSE 1,36% PERITONEALIS DIALIZALO OLDAT [Suspect]
     Route: 033
     Dates: start: 20120515, end: 20120701

REACTIONS (2)
  - LEFT VENTRICULAR FAILURE [None]
  - PERITONITIS BACTERIAL [None]
